FAERS Safety Report 11140607 (Version 1)
Quarter: 2015Q2

REPORT INFORMATION
  Report Type: Spontaneous
  Country: US (occurrence: US)
  Receive Date: 20150525
  Receipt Date: 20150525
  Transmission Date: 20150821
  Serious: No
  Sender: FDA-Public Use
  Company Number: US-JNJFOC-20140903529

PATIENT
  Age: 76 Year
  Sex: Female
  Weight: 88.91 kg

DRUGS (2)
  1. RISPERDAL [Suspect]
     Active Substance: RISPERIDONE
     Indication: SCHIZOPHRENIA
     Route: 048
     Dates: end: 201408
  2. RISPERDAL [Suspect]
     Active Substance: RISPERIDONE
     Indication: SCHIZOPHRENIA
     Route: 048
     Dates: start: 201408

REACTIONS (11)
  - Drug dose omission [Unknown]
  - Hypokinesia [Not Recovered/Not Resolved]
  - Musculoskeletal stiffness [Not Recovered/Not Resolved]
  - Drug ineffective [Unknown]
  - Hallucination, auditory [Not Recovered/Not Resolved]
  - Abasia [Unknown]
  - Frustration [Unknown]
  - Hypertension [Unknown]
  - Pain [Unknown]
  - Hypokinesia [Unknown]
  - Crying [Unknown]

NARRATIVE: CASE EVENT DATE: 201406
